FAERS Safety Report 16738975 (Version 4)
Quarter: 2022Q3

REPORT INFORMATION
  Report Type: Other
  Country: US (occurrence: None)
  Receive Date: 20190826
  Receipt Date: 20220810
  Transmission Date: 20221026
  Serious: Yes (Other)
  Sender: FDA-Public Use
  Company Number: US-ROCHE-2258486

PATIENT

DRUGS (2)
  1. RITUXIMAB [Suspect]
     Active Substance: RITUXIMAB
     Indication: Lymphoma
     Dosage: EIGHT DOSES IN 6 MONTHS
     Route: 042
  2. ZANDELISIB [Suspect]
     Active Substance: ZANDELISIB
     Indication: Lymphoma
     Dosage: FOR 8 WEEKS
     Route: 065

REACTIONS (10)
  - Diarrhoea [Unknown]
  - Rash [Unknown]
  - Colitis [Unknown]
  - Aspartate aminotransferase increased [Unknown]
  - Alanine aminotransferase increased [Unknown]
  - Fatigue [Unknown]
  - Cough [Unknown]
  - Nasal congestion [Unknown]
  - Pneumonia [Unknown]
  - Mucosal inflammation [Unknown]
